FAERS Safety Report 4979203-3 (Version None)
Quarter: 2006Q2

REPORT INFORMATION
  Report Type: 
  Country: None (occurrence: None)
  Receive Date: 20060421
  Receipt Date: 20060410
  Transmission Date: 20061013
  Serious: Yes (Life-Threatening)
  Sender: FDA-Public Use
  Company Number: ES-GLAXOSMITHKLINE-B0420787A

PATIENT
  Age: 70 Year
  Sex: Male

DRUGS (3)
  1. ZIDOVUDINE [Suspect]
     Indication: ACQUIRED IMMUNODEFICIENCY SYNDROME
     Dosage: 250MG TWICE PER DAY
     Route: 048
     Dates: start: 19980101
  2. EPIVIR [Suspect]
     Indication: ACQUIRED IMMUNODEFICIENCY SYNDROME
     Dosage: 150MG TWICE PER DAY
     Route: 048
     Dates: start: 19980101
  3. INVIRASE [Suspect]
     Indication: ACQUIRED IMMUNODEFICIENCY SYNDROME

REACTIONS (2)
  - ATRIAL FIBRILLATION [None]
  - OVERDOSE [None]
